FAERS Safety Report 7750777-2 (Version None)
Quarter: 2011Q3

REPORT INFORMATION
  Report Type: 
  Country: None (occurrence: None)
  Receive Date: 20110914
  Receipt Date: 20110907
  Transmission Date: 20111222
  Serious: Yes (Hospitalization)
  Sender: FDA-Public Use
  Company Number: DE-BRISTOL-MYERS SQUIBB COMPANY-15382963

PATIENT
  Age: 68 Year
  Sex: Male

DRUGS (4)
  1. CISPLATIN [Suspect]
     Indication: HEAD AND NECK CANCER
     Dosage: RECENT DOSE(6TH):09AUG10
     Route: 042
     Dates: start: 20100426
  2. CILENGITIDE [Suspect]
     Indication: HEAD AND NECK CANCER
     Dosage: RECENT DOSE(37TH):27SEP10, DISCONTINUED ON 30AUG10
     Route: 042
     Dates: start: 20100426, end: 20100927
  3. CETUXIMAB [Suspect]
     Indication: HEAD AND NECK CANCER
     Dosage: RECENT DOSE(16TH):23AUG10, INTERRUPTED 30AUG10 STRENGTH:5MG/ML DISCONTINUED ON 30AUG10
     Route: 042
     Dates: start: 20100426, end: 20100823
  4. FLUOROURACIL [Suspect]
     Indication: HEAD AND NECK CANCER
     Dosage: CONTINUOUS INF FROM DAY 1 TO DAY 4 OF CYCLE RECENT DOSE(6TH):09AUG10
     Route: 042
     Dates: start: 20100426

REACTIONS (1)
  - ARTERIOSCLEROSIS [None]
